FAERS Safety Report 22255062 (Version 1)
Quarter: 2023Q2

REPORT INFORMATION
  Report Type: Spontaneous
  Country: US (occurrence: None)
  Receive Date: 20230424
  Receipt Date: 20230424
  Transmission Date: 20230721
  Serious: No
  Sender: FDA-Public Use
  Company Number: None

PATIENT
  Sex: Female

DRUGS (1)
  1. STELARA [Suspect]
     Active Substance: USTEKINUMAB
     Indication: Inflammatory bowel disease
     Dosage: OTHER FREQUENCY : Q 8 WEEKS;?
     Route: 058
     Dates: start: 202302

REACTIONS (2)
  - Neoplasm malignant [None]
  - Therapy interrupted [None]
